FAERS Safety Report 8302562-0 (Version None)
Quarter: 2012Q2

REPORT INFORMATION
  Report Type: 
  Country: None (occurrence: None)
  Receive Date: 20120405
  Receipt Date: 20120326
  Transmission Date: 20120825
  Serious: Yes (Life-Threatening)
  Sender: FDA-Public Use
  Company Number: 2012031667

PATIENT
  Age: 73 Year
  Sex: Female

DRUGS (9)
  1. ALBUMINAR-25 [Suspect]
     Indication: HYPOALBUMINAEMIA
     Dosage: 12.5G/50ML
     Route: 042
     Dates: start: 20120308, end: 20120308
  2. ALBUMINAR-25 [Suspect]
     Indication: URINE OUTPUT DECREASED
     Dosage: 12.5G/50ML
     Route: 042
     Dates: start: 20120308, end: 20120308
  3. ALBUMINAR-25 [Suspect]
     Indication: HYPOALBUMINAEMIA
     Dosage: 12.5G/50ML
     Route: 042
     Dates: start: 20120307, end: 20120307
  4. ALBUMINAR-25 [Suspect]
     Indication: URINE OUTPUT DECREASED
     Dosage: 12.5G/50ML
     Route: 042
     Dates: start: 20120307, end: 20120307
  5. FUROSEMIDE [Concomitant]
  6. CEFMETAZOLE SODIUM (CEFMETAZOLE SODIUM) [Concomitant]
  7. ALBUMINAR-25 [Suspect]
  8. LACTEC G (SORBIT HARTMAN) [Concomitant]
  9. C-PARA (C-PARA) [Concomitant]

REACTIONS (4)
  - INFUSION RELATED REACTION [None]
  - BLOOD PRESSURE DECREASED [None]
  - PRURITUS [None]
  - RASH [None]
